FAERS Safety Report 16849902 (Version 1)
Quarter: 2019Q3

REPORT INFORMATION
  Report Type: Spontaneous
  Country: DE (occurrence: DE)
  Receive Date: 20190925
  Receipt Date: 20190925
  Transmission Date: 20191005
  Serious: Yes (Congenital Anomaly, Other)
  Sender: FDA-Public Use
  Company Number: DE-ELI_LILLY_AND_COMPANY-DE201909007157

PATIENT
  Age: 1 Day
  Weight: 3.29 kg

DRUGS (16)
  1. MIRTAZAPIN [Suspect]
     Active Substance: MIRTAZAPINE
     Indication: SLEEP DISORDER
     Dosage: 7.5 MG, DAILY
     Route: 064
     Dates: start: 20170902, end: 20180530
  2. JUNIK [Concomitant]
     Active Substance: BECLOMETHASONE DIPROPIONATE
     Indication: ASTHMA
     Dosage: 100 UG, UNKNOWN
     Route: 064
     Dates: start: 20170902, end: 20180530
  3. SALBUTAMOL [Concomitant]
     Active Substance: ALBUTEROL
     Indication: ASTHMA
     Dosage: UNK, UNKNOWN
     Route: 064
     Dates: start: 20170902, end: 20180530
  4. JUNIK [Concomitant]
     Active Substance: BECLOMETHASONE DIPROPIONATE
     Indication: ASTHMA
     Dosage: 100 UG, UNKNOWN
     Route: 064
     Dates: start: 20170902, end: 20180530
  5. ESCITALOPRAM [Concomitant]
     Active Substance: ESCITALOPRAM OXALATE
     Indication: DEPRESSION
     Dosage: 20 MG, DAILY
     Route: 064
     Dates: start: 20170902, end: 20170921
  6. DULOXETINE HYDROCHLORIDE. [Suspect]
     Active Substance: DULOXETINE HYDROCHLORIDE
     Indication: DEPRESSION
     Dosage: 30 MG, DAILY
     Route: 064
     Dates: start: 20170921, end: 20180530
  7. DULOXETINE HYDROCHLORIDE. [Suspect]
     Active Substance: DULOXETINE HYDROCHLORIDE
     Indication: DEPRESSION
     Dosage: 30 MG, DAILY
     Route: 064
     Dates: start: 20170921, end: 20180530
  8. SALBUTAMOL [Concomitant]
     Active Substance: ALBUTEROL
     Indication: ASTHMA
     Dosage: UNK, UNKNOWN
     Route: 064
     Dates: start: 20170902, end: 20180530
  9. FOLSAN [Concomitant]
     Active Substance: FOLIC ACID
     Indication: PROPHYLAXIS OF NEURAL TUBE DEFECT
     Dosage: UNK, UNKNOWN
     Route: 064
     Dates: start: 20171001, end: 20180530
  10. XUSAL [Suspect]
     Active Substance: LEVOCETIRIZINE DIHYDROCHLORIDE
     Indication: HYPERSENSITIVITY
     Dosage: UNK, UNKNOWN
     Route: 064
  11. PREGABALIN. [Suspect]
     Active Substance: PREGABALIN
     Indication: POST-TRAUMATIC STRESS DISORDER
     Dosage: 300 MG/D (BIS 125)
     Route: 064
     Dates: start: 20170902, end: 20180530
  12. FOLSAN [Concomitant]
     Active Substance: FOLIC ACID
     Indication: PROPHYLAXIS OF NEURAL TUBE DEFECT
     Dosage: UNK, UNKNOWN
     Route: 064
     Dates: start: 20171001, end: 20180530
  13. MIRTAZAPIN [Suspect]
     Active Substance: MIRTAZAPINE
     Indication: SLEEP DISORDER
     Dosage: 7.5 MG, DAILY
     Route: 064
     Dates: start: 20170902, end: 20180530
  14. XUSAL [Suspect]
     Active Substance: LEVOCETIRIZINE DIHYDROCHLORIDE
     Indication: HYPERSENSITIVITY
     Dosage: UNK, UNKNOWN
     Route: 064
  15. PREGABALIN. [Suspect]
     Active Substance: PREGABALIN
     Indication: POST-TRAUMATIC STRESS DISORDER
     Dosage: 300 MG/D (BIS 125)
     Route: 064
     Dates: start: 20170902, end: 20180530
  16. ESCITALOPRAM [Concomitant]
     Active Substance: ESCITALOPRAM OXALATE
     Indication: DEPRESSION
     Dosage: 20 MG, DAILY
     Route: 064
     Dates: start: 20170902, end: 20170921

REACTIONS (6)
  - Neonatal seizure [Recovered/Resolved]
  - Neonatal hyponatraemia [Unknown]
  - Foetal exposure timing unspecified [Unknown]
  - Cryptorchism [Unknown]
  - Renal aplasia [Not Recovered/Not Resolved]
  - Agitation neonatal [Recovered/Resolved]
